FAERS Safety Report 25195063 (Version 1)
Quarter: 2025Q2

REPORT INFORMATION
  Report Type: Spontaneous
  Country: GB (occurrence: GB)
  Receive Date: 20250415
  Receipt Date: 20250415
  Transmission Date: 20250716
  Serious: Yes (Other)
  Sender: ENDO
  Company Number: GB-ENDO USA, INC.-2025-000994

PATIENT
  Age: 4 Decade
  Sex: Male

DRUGS (2)
  1. KETALAR [Suspect]
     Active Substance: KETAMINE HYDROCHLORIDE
     Indication: Substance use
     Route: 065
  2. UNSPECIFIED INGREDIENT [Concomitant]
     Active Substance: UNSPECIFIED INGREDIENT
     Indication: HIV test positive
     Route: 065

REACTIONS (5)
  - Biliary tract disorder [Unknown]
  - Renal failure [Unknown]
  - Obstructive nephropathy [Unknown]
  - Cystitis [Unknown]
  - Drug abuse [Unknown]
